FAERS Safety Report 9307852 (Version 1)
Quarter: 2013Q2

REPORT INFORMATION
  Report Type: Report from Study
  Country: CA (occurrence: CA)
  Receive Date: 20130524
  Receipt Date: 20130524
  Transmission Date: 20140414
  Serious: Yes (Other)
  Sender: FDA-Public Use
  Company Number: CA-JNJFOC-20130515706

PATIENT
  Age: 21 Year
  Sex: Female
  Weight: 54.5 kg

DRUGS (4)
  1. REMICADE [Suspect]
     Indication: CROHN^S DISEASE
     Route: 042
     Dates: start: 20090608, end: 20130514
  2. CALTRATE [Concomitant]
     Route: 065
  3. MULTIVITAMINES [Concomitant]
     Route: 065
  4. FISH OIL [Concomitant]
     Route: 065

REACTIONS (1)
  - Erythema nodosum [Recovering/Resolving]
